FAERS Safety Report 13690004 (Version 1)
Quarter: 2017Q2

REPORT INFORMATION
  Report Type: Spontaneous
  Country: IT (occurrence: IT)
  Receive Date: 20170626
  Receipt Date: 20170626
  Transmission Date: 20170830
  Serious: Yes (Hospitalization)
  Sender: FDA-Public Use
  Company Number: IT-BAYER-2017-118008

PATIENT
  Age: 85 Year
  Sex: Female

DRUGS (6)
  1. TRIATEC [Concomitant]
     Active Substance: RAMIPRIL
     Route: 048
  2. ANTACAL [Concomitant]
     Active Substance: AMLODIPINE BESYLATE
     Route: 048
  3. CARDIOASPIRIN 100 MG [Suspect]
     Active Substance: ASPIRIN
     Indication: THROMBOSIS PROPHYLAXIS
     Dosage: DAILY DOSE 100 MG
     Route: 048
     Dates: start: 20170101, end: 20170323
  4. EUCREAS [Concomitant]
     Active Substance: METFORMIN HYDROCHLORIDE\VILDAGLIPTIN
     Route: 048
  5. SINVACOR [Concomitant]
     Active Substance: SIMVASTATIN
     Route: 048
  6. LANSOPRAZOLE. [Concomitant]
     Active Substance: LANSOPRAZOLE
     Route: 048

REACTIONS (3)
  - Head injury [Unknown]
  - Loss of consciousness [Unknown]
  - Cerebral haemorrhage [Unknown]

NARRATIVE: CASE EVENT DATE: 20170323
